FAERS Safety Report 22212943 (Version 1)
Quarter: 2023Q2

REPORT INFORMATION
  Report Type: Spontaneous
  Country: US (occurrence: US)
  Receive Date: 20230414
  Receipt Date: 20230414
  Transmission Date: 20230721
  Serious: Yes (Hospitalization, Other)
  Sender: FDA-Public Use
  Company Number: US-MYLANLABS-2023M1038030

PATIENT
  Age: 83 Year
  Sex: Female

DRUGS (12)
  1. GEMCITABINE [Suspect]
     Active Substance: GEMCITABINE
     Indication: Myxofibrosarcoma
     Dosage: 675 MILLIGRAM/SQ. METER, CYCLE, ON DAY 1 AND DAY 8, EVERY 21 DAYS (WITH DOCETAXEL)
     Route: 065
     Dates: start: 20210525
  2. GEMCITABINE [Suspect]
     Active Substance: GEMCITABINE
     Indication: Tuberous sclerosis complex
     Dosage: 675 MILLIGRAM/SQ. METER, CYCLE, ADMINISTERED EVERY 2 WEEKS WHEN INITIATED WITH SIROLIMUS
     Route: 065
  3. GEMCITABINE [Suspect]
     Active Substance: GEMCITABINE
     Indication: Gene mutation
     Dosage: UNK, THEN LATER RESTARTED WITH SIROLIMUS AND CONTINUED
     Route: 065
  4. GEMCITABINE [Suspect]
     Active Substance: GEMCITABINE
     Indication: Metastasis
  5. DOCETAXEL [Suspect]
     Active Substance: DOCETAXEL
     Indication: Sarcoma
     Dosage: 75 MILLIGRAM/SQ. METER, CYCLE, ON DAY 8 , EVERY 21 DAYS
     Route: 065
     Dates: start: 20210525
  6. DOCETAXEL [Suspect]
     Active Substance: DOCETAXEL
     Indication: Tuberous sclerosis complex
  7. DOCETAXEL [Suspect]
     Active Substance: DOCETAXEL
     Indication: Gene mutation
  8. DOCETAXEL [Suspect]
     Active Substance: DOCETAXEL
     Indication: Metastasis
  9. SIROLIMUS [Suspect]
     Active Substance: SIROLIMUS
     Indication: Sarcoma metastatic
     Dosage: 5 MILLIGRAM, CYCLE, ADMINISTERED DAILY IN EACH CYCLE (WITH GEMCITABINE)
     Route: 065
  10. SIROLIMUS [Suspect]
     Active Substance: SIROLIMUS
     Indication: Tuberous sclerosis complex
  11. SIROLIMUS [Suspect]
     Active Substance: SIROLIMUS
     Indication: Gene mutation
  12. SIROLIMUS [Suspect]
     Active Substance: SIROLIMUS
     Indication: Metastasis

REACTIONS (5)
  - Drug ineffective for unapproved indication [Unknown]
  - Off label use [Unknown]
  - Neutropenia [Unknown]
  - Anaemia [Unknown]
  - Fatigue [Unknown]
